FAERS Safety Report 12203266 (Version 1)
Quarter: 2016Q1

REPORT INFORMATION
  Report Type: Spontaneous
  Country: US (occurrence: None)
  Receive Date: 20160321
  Receipt Date: 20160321
  Transmission Date: 20160526
  Serious: Yes (Hospitalization)
  Sender: FDA-Public Use
  Company Number: None

PATIENT
  Age: 32 Year
  Sex: Male
  Weight: 75 kg

DRUGS (9)
  1. VIVITROL [Suspect]
     Active Substance: NALTREXONE
     Indication: DRUG ABUSE
     Dosage: 380 MG Q 28 DAYS INTRAMUSCULAR
     Route: 030
     Dates: start: 20150716, end: 20160209
  2. VENLAFAXINE [Concomitant]
     Active Substance: VENLAFAXINE HYDROCHLORIDE
  3. VIVITROL [Suspect]
     Active Substance: NALTREXONE
     Indication: PROPHYLAXIS
     Dosage: 380 MG Q 28 DAYS INTRAMUSCULAR
     Route: 030
     Dates: start: 20150716, end: 20160209
  4. VIVITROL [Suspect]
     Active Substance: NALTREXONE
     Indication: DISEASE RECURRENCE
     Dosage: 380 MG Q 28 DAYS INTRAMUSCULAR
     Route: 030
     Dates: start: 20150716, end: 20160209
  5. SULFAMETHOXAZOLE/TRIMETHOPRIM [Concomitant]
     Active Substance: SULFAMETHOXAZOLE\TRIMETHOPRIM
  6. PRAZOSIN [Concomitant]
     Active Substance: PRAZOSIN
  7. OMEPRAZOLE. [Concomitant]
     Active Substance: OMEPRAZOLE
  8. QUETIAPINE [Concomitant]
     Active Substance: QUETIAPINE
  9. CEPHALEXIN. [Concomitant]
     Active Substance: CEPHALEXIN

REACTIONS (4)
  - Drug screen negative [None]
  - Drug abuse [None]
  - Disease recurrence [None]
  - Drug ineffective [None]

NARRATIVE: CASE EVENT DATE: 20160311
